FAERS Safety Report 5216376-1 (Version None)
Quarter: 2006Q4

REPORT INFORMATION
  Report Type: 
  Country: None (occurrence: None)
  Receive Date: 20061124
  Receipt Date: 20060908
  Transmission Date: 20070319
  Serious: Yes (Hospitalization)
  Sender: FDA-Public Use
  Company Number: WAES 0609USA01603

PATIENT
  Age: 74 Year
  Sex: Female

DRUGS (4)
  1. VYTORIN [Suspect]
     Indication: DRUG USE FOR UNKNOWN INDICATION
     Dosage: 10-80 MG/UNK/PO
     Route: 048
  2. TOPROL-XL [Concomitant]
  3. FUROSEMIDE [Concomitant]
  4. LISINOPRIL [Concomitant]

REACTIONS (1)
  - RHABDOMYOLYSIS [None]
